FAERS Safety Report 8595030-2 (Version None)
Quarter: 2012Q3

REPORT INFORMATION
  Report Type: 
  Country: None (occurrence: None)
  Receive Date: 20120815
  Receipt Date: 20120807
  Transmission Date: 20120928
  Serious: Yes (Other)
  Sender: FDA-Public Use
  Company Number: NL-ASTRAZENECA-2012SE46207

PATIENT
  Age: 26632 Day
  Sex: Female

DRUGS (12)
  1. BRILINTA [Suspect]
     Route: 048
     Dates: start: 20111208, end: 20120702
  2. MONOCEDOCARD [Concomitant]
     Indication: ANGINA PECTORIS
     Route: 048
  3. ASPIRIN [Concomitant]
     Route: 048
  4. TIMOLOL MALEATE [Concomitant]
     Indication: GLAUCOMA
     Route: 047
  5. BRILINTA [Suspect]
     Indication: CORONARY ARTERY DISEASE
     Route: 048
     Dates: start: 20111107, end: 20111201
  6. LATANOPROST [Concomitant]
     Indication: GLAUCOMA
     Route: 047
  7. AMLODIPINE [Concomitant]
     Indication: ANGINA PECTORIS
     Route: 048
  8. TAVONIN [Concomitant]
     Indication: RHEUMATOID ARTHRITIS
     Route: 048
  9. NITROGLYCERIN [Concomitant]
     Indication: ANGINA PECTORIS
     Route: 060
  10. SIMVASTATIN [Concomitant]
     Indication: HYPERCHOLESTEROLAEMIA
     Route: 048
  11. TRIAMCINOLONE [Concomitant]
     Indication: RHEUMATOID ARTHRITIS
     Route: 048
  12. RANITIDINE [Concomitant]
     Indication: GASTRITIS PROPHYLAXIS
     Route: 048

REACTIONS (1)
  - HAEMATOMA INFECTION [None]
